FAERS Safety Report 6908057-0 (Version None)
Quarter: 2010Q3

REPORT INFORMATION
  Report Type: 
  Country: None (occurrence: None)
  Receive Date: 20100805
  Receipt Date: 20100722
  Transmission Date: 20110219
  Serious: Yes (Other)
  Sender: FDA-Public Use
  Company Number: AR-ELI_LILLY_AND_COMPANY-AR201007006806

PATIENT
  Sex: Male

DRUGS (2)
  1. EFFIENT [Suspect]
     Dosage: UNK, UNKNOWN
     Route: 065
  2. CLOPIDOGREL [Concomitant]

REACTIONS (1)
  - THROMBOSIS IN DEVICE [None]
